FAERS Safety Report 8938041 (Version 1)
Quarter: 2012Q4

REPORT INFORMATION
  Report Type: Spontaneous
  Country: GB (occurrence: None)
  Receive Date: 20121121
  Receipt Date: 20121121
  Transmission Date: 20130627
  Serious: Yes (Other)
  Sender: FDA-Public Use
  Company Number: GB-1195199

PATIENT
  Age: 4 Year
  Sex: Female
  Weight: 10 kg

DRUGS (1)
  1. CILOXAN [Suspect]
     Dates: start: 20121024

REACTIONS (2)
  - Rash [None]
  - Urticaria [None]
